FAERS Safety Report 17638471 (Version 4)
Quarter: 2020Q3

REPORT INFORMATION
  Report Type: Spontaneous
  Country: US (occurrence: US)
  Receive Date: 20200407
  Receipt Date: 20200713
  Transmission Date: 20201102
  Serious: Yes (Hospitalization, Other)
  Sender: FDA-Public Use
  Company Number: US-SA-2020SA082315

PATIENT

DRUGS (3)
  1. LEMTRADA [Suspect]
     Active Substance: ALEMTUZUMAB
     Dosage: UNK
     Route: 041
     Dates: start: 201702, end: 201702
  2. LEMTRADA [Suspect]
     Active Substance: ALEMTUZUMAB
     Indication: SECONDARY PROGRESSIVE MULTIPLE SCLEROSIS
     Dosage: UNK
     Route: 041
     Dates: start: 2018, end: 2018
  3. LEMTRADA [Suspect]
     Active Substance: ALEMTUZUMAB
     Dosage: UNK
     Route: 041
     Dates: start: 201602, end: 201602

REACTIONS (15)
  - Muscular weakness [Unknown]
  - Abortion spontaneous [Unknown]
  - Gait disturbance [Not Recovered/Not Resolved]
  - Depression [Unknown]
  - Generalised tonic-clonic seizure [Unknown]
  - Immune reconstitution inflammatory syndrome [Unknown]
  - Cognitive disorder [Not Recovered/Not Resolved]
  - Multiple sclerosis [Unknown]
  - Blood pressure increased [Unknown]
  - Status epilepticus [Unknown]
  - Disorientation [Unknown]
  - Headache [Unknown]
  - Encephalitis autoimmune [Recovered/Resolved]
  - Aphasia [Unknown]
  - Multiple sclerosis relapse [Not Recovered/Not Resolved]

NARRATIVE: CASE EVENT DATE: 201911
